FAERS Safety Report 10791864 (Version 1)
Quarter: 2015Q1

REPORT INFORMATION
  Report Type: Report from Study
  Country: US (occurrence: ZA)
  Receive Date: 20150213
  Receipt Date: 20150213
  Transmission Date: 20150721
  Serious: Yes (Congenital Anomaly, Other)
  Sender: FDA-Public Use
  Company Number: US-CIPLA LTD.-2015US01003

PATIENT
  Sex: Male
  Weight: 2.18 kg

DRUGS (10)
  1. NEVIRAPINE. [Suspect]
     Active Substance: NEVIRAPINE
     Dosage: 400 MG, DAILY (MOTHER^S DOSE)
     Route: 064
     Dates: end: 20140408
  2. ISONIAZID. [Concomitant]
     Active Substance: ISONIAZID
     Dosage: UNK
     Route: 064
  3. FOLATE SUPPLIMENT [Concomitant]
     Dosage: UNK
     Route: 064
  4. LOPINAVIR/RITONAVIR [Suspect]
     Active Substance: LOPINAVIR\RITONAVIR
     Dosage: 8 TABLETS (MOTHER^S DOSE)
     Route: 064
     Dates: start: 20140408
  5. RIFAMPIN. [Concomitant]
     Active Substance: RIFAMPIN
     Dosage: UNK
     Route: 064
  6. STAVUDINE FOR ORAL SOLUTION 1 MG / ML [Suspect]
     Active Substance: STAVUDINE
     Dosage: 60 MG, DAILY (MOTHER^S DOSE)
     Route: 064
  7. ETHAMBUTOL [Concomitant]
     Active Substance: ETHAMBUTOL HYDROCHLORIDE
     Dosage: UNK
     Route: 064
  8. LAMIVUDINE. [Suspect]
     Active Substance: LAMIVUDINE
     Dosage: 300 MG, A DAY (MOTHER^S DOSE)
     Route: 064
  9. TENOFOVIR [Suspect]
     Active Substance: TENOFOVIR
     Dosage: 300 MG, DAILY (MOTHER^S DOSE)
     Route: 064
     Dates: start: 20140408
  10. PYRAZINAMIDE. [Concomitant]
     Active Substance: PYRAZINAMIDE
     Dosage: UNK
     Route: 064

REACTIONS (2)
  - Foetal exposure during pregnancy [Unknown]
  - Trisomy 21 [Unknown]
